FAERS Safety Report 9204670 (Version 2)
Quarter: 2013Q3

REPORT INFORMATION
  Report Type: Report from Study
  Country: US (occurrence: US)
  Receive Date: 20120709
  Receipt Date: 20130701
  Transmission Date: 20140515
  Serious: Yes (Disabling, Other)
  Sender: FDA-Public Use
  Company Number: PHEH2011US010467

PATIENT
  Age: 55 Year
  Sex: Female
  Weight: 85.6 kg

DRUGS (8)
  1. GLEEVEC [Suspect]
     Indication: GASTROINTESTINAL STROMAL TUMOUR
     Dosage: 400 MG, DAILY
     Route: 048
     Dates: start: 201007
  2. GLEEVEC [Suspect]
     Dosage: 400 MG, DAILY
     Route: 048
     Dates: start: 20111025
  3. WATER PILLS [Concomitant]
  4. TRAMADOL [Concomitant]
  5. FONDAPARINUX [Concomitant]
  6. ENOXAPARIN [Concomitant]
  7. AMBIEN [Concomitant]
  8. FAMOTIDINE [Concomitant]
     Dosage: 20 MG, DAILY
     Route: 048

REACTIONS (15)
  - Eyelid oedema [Recovered/Resolved]
  - Vitiligo [Not Recovered/Not Resolved]
  - Thyroid disorder [Unknown]
  - Vitamin B12 decreased [Unknown]
  - Vitamin D decreased [Unknown]
  - Fluid retention [Recovered/Resolved]
  - Local swelling [Recovered/Resolved]
  - Hypokalaemia [Not Recovered/Not Resolved]
  - Muscle spasms [Not Recovered/Not Resolved]
  - Nausea [Not Recovered/Not Resolved]
  - Diarrhoea [Not Recovered/Not Resolved]
  - Periorbital oedema [Not Recovered/Not Resolved]
  - Gastritis [Not Recovered/Not Resolved]
  - Vomiting [Not Recovered/Not Resolved]
  - Fatigue [Unknown]
